FAERS Safety Report 24432616 (Version 2)
Quarter: 2024Q4

REPORT INFORMATION
  Report Type: Spontaneous
  Country: CZ (occurrence: CZ)
  Receive Date: 20241014
  Receipt Date: 20241021
  Transmission Date: 20250115
  Serious: Yes (Life-Threatening, Other)
  Sender: NOVARTIS
  Company Number: None

PATIENT
  Age: 62 Year
  Sex: Female
  Weight: 57 kg

DRUGS (7)
  1. KISQALI [Suspect]
     Active Substance: RIBOCICLIB
     Indication: Breast cancer
     Dosage: 600 MG (3-0-0, ADMINISTERED FOR 21 DAYS AND 7 DAYS OFF)
     Route: 048
     Dates: start: 20240529, end: 20240903
  2. KISQALI [Suspect]
     Active Substance: RIBOCICLIB
     Dosage: REDUCED DOSE OF 2-0-0
     Route: 048
     Dates: start: 20241007
  3. LETROZOLE [Suspect]
     Active Substance: LETROZOLE
     Indication: Breast cancer
     Dosage: 1-0-0
     Route: 048
     Dates: start: 20240515, end: 20240903
  4. LETROZOLE [Suspect]
     Active Substance: LETROZOLE
     Indication: Hormone replacement therapy
  5. NIMESULIDE [Suspect]
     Active Substance: NIMESULIDE
     Indication: Pain
     Dosage: 2 PACKS IN TOTAL IN 2024, FOR PAIN AS NEEDED
     Route: 048
     Dates: start: 2024
  6. DICLOFENAC [Concomitant]
     Active Substance: DICLOFENAC
     Indication: Pain
     Dosage: MAXIMUM DOSAGE OF 1 TABLET TWICE A DAY (DUO 30X75MG)
     Route: 048
     Dates: start: 20240410
  7. ZALDIAR [Concomitant]
     Active Substance: ACETAMINOPHEN\TRAMADOL HYDROCHLORIDE
     Indication: Pain
     Dosage: UNK
     Route: 065

REACTIONS (2)
  - Hepatotoxicity [Recovering/Resolving]
  - Fatigue [Recovering/Resolving]

NARRATIVE: CASE EVENT DATE: 20240903
